FAERS Safety Report 4408349-3 (Version None)
Quarter: 2004Q3

REPORT INFORMATION
  Report Type: 
  Country: None (occurrence: None)
  Receive Date: 20040722
  Receipt Date: 20040716
  Transmission Date: 20050211
  Serious: Yes (Hospitalization)
  Sender: FDA-Public Use
  Company Number: 2004UW14801

PATIENT
  Age: 57 Year
  Sex: Female

DRUGS (4)
  1. SEROQUEL [Suspect]
     Dosage: 800 MG PO
     Route: 048
  2. SEROQUEL [Suspect]
     Dosage: 1400 MG PO
     Route: 048
  3. SEROQUEL [Suspect]
     Dosage: 600 MG PO
     Route: 048
  4. PROZAC [Concomitant]

REACTIONS (3)
  - LOWER LIMB FRACTURE [None]
  - MUSCLE SPASMS [None]
  - MYOCLONUS [None]
